FAERS Safety Report 16519614 (Version 2)
Quarter: 2019Q3

REPORT INFORMATION
  Report Type: Spontaneous
  Country: JP (occurrence: JP)
  Receive Date: 20190702
  Receipt Date: 20190702
  Transmission Date: 20191004
  Serious: Yes (Other)
  Sender: FDA-Public Use
  Company Number: PHJP2019JP007927

PATIENT
  Age: 17 Year
  Sex: Female

DRUGS (4)
  1. CICLOSPORIN [Suspect]
     Active Substance: CYCLOSPORINE
     Indication: NEPHROTIC SYNDROME
     Dosage: 60 MG, UNK
     Route: 048
  2. PREDNISOLONE. [Concomitant]
     Active Substance: PREDNISOLONE
     Indication: NEPHROTIC SYNDROME
     Dosage: 15 MG, QOD
     Route: 048
  3. MIZORIBINE [Concomitant]
     Active Substance: MIZORIBINE
     Indication: NEPHROTIC SYNDROME
     Dosage: 50 MG, UNK
     Route: 065
  4. PREDNISOLONE. [Concomitant]
     Active Substance: PREDNISOLONE
     Dosage: UNK
     Route: 048

REACTIONS (8)
  - Joint destruction [Unknown]
  - Nephrotic syndrome [Unknown]
  - Rheumatoid arthritis [Unknown]
  - Synovitis [Unknown]
  - Musculoskeletal stiffness [Recovering/Resolving]
  - Joint swelling [Unknown]
  - Arthralgia [Recovering/Resolving]
  - Respiratory tract infection [Unknown]
